FAERS Safety Report 10573458 (Version 1)
Quarter: 2014Q4

REPORT INFORMATION
  Report Type: Spontaneous
  Country: CN (occurrence: None)
  Receive Date: 20141030
  Receipt Date: 20141030
  Transmission Date: 20150529
  Serious: Yes (Hospitalization)
  Sender: FDA-Public Use
  Company Number: PHHY2013CN008888

PATIENT
  Age: 51 Year
  Sex: Male
  Weight: 60 kg

DRUGS (2)
  1. SEBIVO [Suspect]
     Active Substance: TELBIVUDINE
     Indication: HEPATITIS B
     Route: 048
     Dates: start: 20120712, end: 20130124
  2. SEBIVO [Suspect]
     Active Substance: TELBIVUDINE
     Indication: HEPATIC CIRRHOSIS
     Route: 048
     Dates: start: 20120712, end: 20130124

REACTIONS (6)
  - Fatigue [None]
  - Gait disturbance [None]
  - Muscular weakness [None]
  - Blood creatine phosphokinase MB increased [None]
  - Dyspnoea [None]
  - Muscle swelling [None]

NARRATIVE: CASE EVENT DATE: 20121201
